FAERS Safety Report 20197417 (Version 1)
Quarter: 2021Q4

REPORT INFORMATION
  Report Type: Spontaneous
  Country: NL (occurrence: NL)
  Receive Date: 20211217
  Receipt Date: 20211217
  Transmission Date: 20220303
  Serious: Yes (Death, Other)
  Sender: FDA-Public Use
  Company Number: NL-AMGEN-NLDSP2021198183

PATIENT

DRUGS (1)
  1. CARFILZOMIB [Suspect]
     Active Substance: CARFILZOMIB
     Indication: Product used for unknown indication
     Dosage: UNK
     Route: 065

REACTIONS (8)
  - Death [Fatal]
  - Acute kidney injury [Fatal]
  - Tubulointerstitial nephritis [Unknown]
  - Obstructive nephropathy [Unknown]
  - Myeloma cast nephropathy [Unknown]
  - Renal impairment [Unknown]
  - Urinary tract infection [Unknown]
  - Myositis [Unknown]
